FAERS Safety Report 6594165-3 (Version None)
Quarter: 2010Q1

REPORT INFORMATION
  Report Type: 
  Country: None (occurrence: None)
  Receive Date: 20100222
  Receipt Date: 20100210
  Transmission Date: 20100710
  Serious: Yes (Hospitalization)
  Sender: FDA-Public Use
  Company Number: NL-ROCHE-684785

PATIENT
  Weight: 66.4 kg

DRUGS (5)
  1. CAPECITABINE [Suspect]
     Indication: GASTRIC CANCER
     Dosage: INTERRUPTED
     Route: 065
     Dates: start: 20100203, end: 20100208
  2. EPIRUBICIN [Suspect]
     Indication: GASTRIC CANCER
     Dosage: INTERRUPTED
     Route: 065
     Dates: start: 20100203, end: 20100208
  3. CISPLATIN [Suspect]
     Indication: GASTRIC CANCER
     Dosage: INTERRUPTED
     Route: 065
     Dates: start: 20100203, end: 20100208
  4. OMEPRAZOLE [Concomitant]
     Route: 048
     Dates: start: 20090101
  5. POTASSIUM CHLORIDE [Concomitant]
     Route: 048
     Dates: start: 20090101

REACTIONS (4)
  - HYPOKALAEMIA [None]
  - METABOLIC ALKALOSIS [None]
  - NAUSEA [None]
  - VOMITING [None]
